FAERS Safety Report 10013520 (Version 1)
Quarter: 2014Q1

REPORT INFORMATION
  Report Type: Report from Study
  Country: CA (occurrence: CA)
  Receive Date: 20140314
  Receipt Date: 20140314
  Transmission Date: 20141002
  Serious: Yes (Hospitalization, Other)
  Sender: FDA-Public Use
  Company Number: CA-US-EMD SERONO, INC.-7274573

PATIENT
  Sex: Female

DRUGS (1)
  1. REBIF [Suspect]
     Indication: MULTIPLE SCLEROSIS
     Route: 058
     Dates: start: 20000210

REACTIONS (16)
  - Fall [Unknown]
  - Concussion [Unknown]
  - Transient ischaemic attack [Unknown]
  - Cerebral haemorrhage [Unknown]
  - Bipolar disorder [Unknown]
  - Fungal infection [Unknown]
  - Contusion [Unknown]
  - Vomiting [Unknown]
  - Dizziness [Unknown]
  - Arthritis [Unknown]
  - Sleep apnoea syndrome [Unknown]
  - Paralysis [Unknown]
  - Hordeolum [Unknown]
  - Urinary tract infection [Unknown]
  - Cluttering [Unknown]
  - Hypersensitivity [Unknown]
